FAERS Safety Report 24259439 (Version 1)
Quarter: 2024Q3

REPORT INFORMATION
  Report Type: Spontaneous
  Country: GB (occurrence: GB)
  Receive Date: 20240828
  Receipt Date: 20240828
  Transmission Date: 20241016
  Serious: Yes (Other)
  Sender: SANDOZ
  Company Number: None

PATIENT
  Age: 37 Year
  Sex: Female
  Weight: 62 kg

DRUGS (2)
  1. ESTRADIOL [Suspect]
     Active Substance: ESTRADIOL
     Indication: Hormone replacement therapy
     Dosage: 50 MG (ON TUESDAY AND FRIDAY)
     Route: 065
     Dates: start: 20240809, end: 20240819
  2. LEVOTHYROXINE [Concomitant]
     Active Substance: LEVOTHYROXINE\LEVOTHYROXINE SODIUM
     Indication: Autoimmune thyroiditis
     Route: 065
     Dates: start: 20090801

REACTIONS (6)
  - Vertigo [Not Recovered/Not Resolved]
  - Disorientation [Recovering/Resolving]
  - Photopsia [Not Recovered/Not Resolved]
  - Anxiety [Recovering/Resolving]
  - Vision blurred [Not Recovered/Not Resolved]
  - Dizziness [Not Recovered/Not Resolved]

NARRATIVE: CASE EVENT DATE: 20240819
